FAERS Safety Report 6214550-9 (Version None)
Quarter: 2009Q2

REPORT INFORMATION
  Report Type: 
  Country: None (occurrence: None)
  Receive Date: 20090604
  Receipt Date: 20090521
  Transmission Date: 20091009
  Serious: Yes (Death, Hospitalization)
  Sender: FDA-Public Use
  Company Number: US-AVENTIS-200914464US

PATIENT
  Sex: Female

DRUGS (7)
  1. ARAVA [Suspect]
     Indication: RHEUMATOID ARTHRITIS
     Route: 048
     Dates: start: 20061024, end: 20061106
  2. HUMIRA [Suspect]
     Indication: RHEUMATOID ARTHRITIS
     Dosage: DOSE: 1 SHOT
     Route: 042
  3. QUESTRAN [Concomitant]
     Dosage: DOSE: UNK
  4. PROTONIX [Concomitant]
     Dosage: DOSE: UNK
  5. DILAUDID [Concomitant]
     Dosage: DOSE: UNK
  6. QUESTRAN [Concomitant]
     Dosage: DOSE: UNK
  7. PROTON PUMP INHIBITORS [Concomitant]
     Dosage: DOSE: UNK

REACTIONS (27)
  - ABDOMINAL PAIN [None]
  - ACUTE INTERSTITIAL PNEUMONITIS [None]
  - ASTHENIA [None]
  - ATELECTASIS [None]
  - BACK PAIN [None]
  - CHILLS [None]
  - CHROMATURIA [None]
  - COAGULOPATHY [None]
  - DYSURIA [None]
  - HAEMORRHAGE INTRACRANIAL [None]
  - HEADACHE [None]
  - HEPATIC ENCEPHALOPATHY [None]
  - HEPATIC FAILURE [None]
  - HYPERAMMONAEMIA [None]
  - HYPOXIA [None]
  - JAUNDICE [None]
  - LIVER FUNCTION TEST ABNORMAL [None]
  - MENTAL STATUS CHANGES [None]
  - MYALGIA [None]
  - NAUSEA [None]
  - NIGHT SWEATS [None]
  - POLLAKIURIA [None]
  - PULMONARY EMBOLISM [None]
  - PULMONARY OEDEMA [None]
  - PYREXIA [None]
  - RASH MACULO-PAPULAR [None]
  - VOMITING [None]
